FAERS Safety Report 6965485-5 (Version None)
Quarter: 2010Q3

REPORT INFORMATION
  Report Type: 
  Country: None (occurrence: None)
  Receive Date: 20100903
  Receipt Date: 20100826
  Transmission Date: 20110219
  Serious: Yes (Death, Hospitalization)
  Sender: FDA-Public Use
  Company Number: B0672797A

PATIENT
  Age: 11 Year
  Sex: Male

DRUGS (1)
  1. LAMICTAL [Suspect]
     Indication: EPILEPSY
     Dosage: 5MG THREE TIMES PER DAY
     Dates: start: 20070101, end: 20100101

REACTIONS (1)
  - MENINGITIS ASEPTIC [None]
